FAERS Safety Report 8574932-7 (Version None)
Quarter: 2012Q3

REPORT INFORMATION
  Report Type: 
  Country: None (occurrence: None)
  Receive Date: 20120807
  Receipt Date: 20120726
  Transmission Date: 20120928
  Serious: Yes (Hospitalization)
  Sender: FDA-Public Use
  Company Number: US-BAYER-2012-038722

PATIENT
  Age: 19 Year
  Sex: Female
  Weight: 67.574 kg

DRUGS (6)
  1. HYDROCODONE BITARTRATE AND ACETAMINOPHEN [Concomitant]
     Dosage: 5-500MG, UNK
     Dates: start: 20100405
  2. MEDROL [Concomitant]
     Dosage: 4 MG, UNK
     Dates: start: 20100319
  3. DAYPRO [Concomitant]
     Dosage: 600 MG, 2 TABS Q (INTERPRETED AS EVERY) DAY
     Route: 048
  4. TYLENOL [Concomitant]
     Dosage: UNK UNK, AS NEEDED
  5. YAZ [Suspect]
     Indication: ACNE
     Dosage: UNK
     Route: 048
     Dates: start: 20090401, end: 20100501
  6. ADVIL [Concomitant]
     Indication: PAIN
     Dosage: UNK UNK, AS NEEDED

REACTIONS (6)
  - ANXIETY [None]
  - DEEP VEIN THROMBOSIS [None]
  - PAIN [None]
  - INJURY [None]
  - GENERAL PHYSICAL HEALTH DETERIORATION [None]
  - EMOTIONAL DISTRESS [None]
